FAERS Safety Report 9938677 (Version 2)
Quarter: 2014Q4

REPORT INFORMATION
  Report Type: Spontaneous
  Country: JP (occurrence: JP)
  Receive Date: 20140303
  Receipt Date: 20141217
  Transmission Date: 20150529
  Serious: Yes (Other)
  Sender: FDA-Public Use
  Company Number: JP-TEVA-466247ISR

PATIENT
  Age: 67 Year
  Sex: Female

DRUGS (2)
  1. S1 [Suspect]
     Active Substance: GIMERACIL\OTERACIL\TEGAFUR
     Indication: GASTRIC CANCER
     Route: 065
  2. CISPLATIN. [Suspect]
     Active Substance: CISPLATIN
     Indication: GASTRIC CANCER
     Route: 065

REACTIONS (3)
  - Trousseau^s syndrome [Unknown]
  - Cerebral infarction [Unknown]
  - Cerebral haemorrhage [Unknown]
